FAERS Safety Report 23874973 (Version 1)
Quarter: 2024Q2

REPORT INFORMATION
  Report Type: Spontaneous
  Country: US (occurrence: None)
  Receive Date: 20240518
  Receipt Date: 20240518
  Transmission Date: 20240716
  Serious: Yes (unspecified)
  Sender: FDA-Public Use
  Company Number: None

PATIENT
  Age: 60 Year
  Sex: Male
  Weight: 79.65 kg

DRUGS (1)
  1. BELBUCA [Suspect]
     Active Substance: BUPRENORPHINE HYDROCHLORIDE
     Indication: Pain management
     Dosage: FREQUENCY : TWICE A DAY?OTHER ROUTE : APPLIED TP THE INSIDE OF THE CHEEKS BY G?
     Route: 050

REACTIONS (1)
  - Dental caries [None]

NARRATIVE: CASE EVENT DATE: 20240425
